FAERS Safety Report 7930922-6 (Version None)
Quarter: 2011Q4

REPORT INFORMATION
  Report Type: 
  Country: None (occurrence: None)
  Receive Date: 20111121
  Receipt Date: 20111117
  Transmission Date: 20120403
  Serious: No
  Sender: FDA-Public Use
  Company Number: US-TEVA-309742USA

PATIENT
  Sex: Female

DRUGS (6)
  1. ROPINIROLE [Concomitant]
  2. BENAZEPRIL HYDROCHLORIDE [Concomitant]
  3. SERTRALINE HYDROCHLORIDE [Concomitant]
  4. METOPROLOL TARTRATE [Concomitant]
  5. AZILECT [Suspect]
     Indication: PARKINSON'S DISEASE
     Dosage: .5 MILLIGRAM;
     Route: 048
     Dates: start: 20110111
  6. SINEMET [Concomitant]

REACTIONS (1)
  - INSOMNIA [None]
